FAERS Safety Report 8816675 (Version 1)
Quarter: 2012Q4

REPORT INFORMATION
  Report Type: Spontaneous
  Country: US (occurrence: None)
  Receive Date: 20120928
  Receipt Date: 20120928
  Transmission Date: 20130627
  Serious: Yes (Hospitalization)
  Sender: FDA-Public Use
  Company Number: SP06095

PATIENT
  Age: 55 Year
  Sex: Female
  Weight: 69.4 kg

DRUGS (12)
  1. RELISTOR [Suspect]
     Dosage: 6 mg (12 mg, 1 in 2 D), Subcutaneous
     Route: 058
  2. FENTANYL [Concomitant]
  3. PERCOCET [Concomitant]
  4. LISINOPRIL [Concomitant]
  5. ACIPHEX [Concomitant]
  6. SINGULAIR [Concomitant]
  7. METHOTREXATE [Concomitant]
  8. ADVAIR [Concomitant]
  9. AMITIZA [Concomitant]
  10. DIAZEPAM [Concomitant]
  11. WELLBUTRIN [Concomitant]
  12. ZOFRAN [Concomitant]

REACTIONS (7)
  - Fall [None]
  - Blood potassium decreased [None]
  - Rectal tenesmus [None]
  - Blood magnesium decreased [None]
  - Blood sodium decreased [None]
  - Unevaluable event [None]
  - Constipation [None]
